FAERS Safety Report 9111381 (Version 1)
Quarter: 2013Q1

REPORT INFORMATION
  Report Type: Spontaneous
  Country: US (occurrence: US)
  Receive Date: 20130219
  Receipt Date: 20130219
  Transmission Date: 20140127
  Serious: Yes (Hospitalization, Other)
  Sender: FDA-Public Use
  Company Number: US-BRISTOL-MYERS SQUIBB COMPANY-17222522

PATIENT
  Age: 64 Year
  Sex: Female

DRUGS (1)
  1. ORENCIA FOR INJ [Suspect]
     Dosage: RESTART IN NOV 12?RECENT DOSE 1DEC12
     Route: 042

REACTIONS (2)
  - Skin cancer [Unknown]
  - Ear infection [Unknown]
